FAERS Safety Report 13255470 (Version 1)
Quarter: 2017Q1

REPORT INFORMATION
  Report Type: Spontaneous
  Country: US (occurrence: US)
  Receive Date: 20170221
  Receipt Date: 20170221
  Transmission Date: 20170428
  Serious: No
  Sender: FDA-Public Use
  Company Number: US-TEVA-657867USA

PATIENT
  Sex: Female

DRUGS (1)
  1. BALZIVA [Suspect]
     Active Substance: ETHINYL ESTRADIOL\NORETHINDRONE
     Dosage: 0.4MG/0.035MG

REACTIONS (2)
  - Arthralgia [Unknown]
  - Food allergy [Unknown]
